FAERS Safety Report 7121368-1 (Version None)
Quarter: 2010Q4

REPORT INFORMATION
  Report Type: 
  Country: None (occurrence: None)
  Receive Date: 20101124
  Receipt Date: 20101117
  Transmission Date: 20110411
  Serious: Yes (Hospitalization)
  Sender: FDA-Public Use
  Company Number: CH-ELI_LILLY_AND_COMPANY-CH201011006036

PATIENT
  Sex: Male
  Weight: 65 kg

DRUGS (1)
  1. EFFIENT [Suspect]
     Indication: ACUTE CORONARY SYNDROME
     Dosage: UNK, UNKNOWN
     Route: 065

REACTIONS (3)
  - DUODENAL ULCER [None]
  - GASTROINTESTINAL DISORDER [None]
  - UPPER GASTROINTESTINAL HAEMORRHAGE [None]
